FAERS Safety Report 14317026 (Version 3)
Quarter: 2018Q1

REPORT INFORMATION
  Report Type: Spontaneous
  Country: PL (occurrence: PL)
  Receive Date: 20171222
  Receipt Date: 20180105
  Transmission Date: 20180509
  Serious: Yes (Other)
  Sender: FDA-Public Use
  Company Number: PL-ASTELLAS-2017US053413

PATIENT
  Age: 75 Year
  Sex: Male

DRUGS (13)
  1. NEDAL [Concomitant]
     Indication: PRODUCT USED FOR UNKNOWN INDICATION
     Dosage: 0.5 DF (5 MG), ONCE DAILY
     Route: 065
  2. VESICARE [Suspect]
     Active Substance: SOLIFENACIN SUCCINATE
     Dosage: 0.5 DF, ONCE DAILY
     Route: 048
     Dates: start: 20171130
  3. VESICARE [Suspect]
     Active Substance: SOLIFENACIN SUCCINATE
     Dosage: UNK UNK, UNKNOWN FREQ.
     Route: 065
     Dates: end: 20171211
  4. ACARD [Concomitant]
     Active Substance: ASPIRIN
     Indication: CARDIAC DISORDER
     Dosage: UNK UNK, UNKNOWN FREQ. (FROM 4 YEARS)
     Route: 048
  5. TRITACE [Concomitant]
     Active Substance: RAMIPRIL
     Indication: CARDIAC DISORDER
     Dosage: UNK UNK, UNKNOWN FREQ. (FROM 4 YEARS)
     Route: 048
  6. PLAVIX [Concomitant]
     Active Substance: CLOPIDOGREL BISULFATE
     Indication: PRODUCT USED FOR UNKNOWN INDICATION
     Route: 065
  7. LECALPIN [Concomitant]
     Indication: PRODUCT USED FOR UNKNOWN INDICATION
     Route: 065
  8. VESICARE [Suspect]
     Active Substance: SOLIFENACIN SUCCINATE
     Indication: URINARY INCONTINENCE
     Route: 065
     Dates: start: 201711
  9. VIAGRA [Concomitant]
     Active Substance: SILDENAFIL CITRATE
     Indication: PROPHYLAXIS
     Dosage: 0.5 DF, EVERY SECOND DAY
     Route: 048
  10. ZYTEE [Concomitant]
     Indication: CARDIAC DISORDER
     Dosage: UNK UNK, UNKNOWN FREQ. (FROM 4 YEARS)
     Route: 048
  11. NILOGRIN [Concomitant]
     Indication: CEREBRAL ISCHAEMIA
     Dosage: UNK MG, UNKNOWN FREQ. (FOR MANY YEARS)
     Route: 048
  12. TRANXENE [Concomitant]
     Active Substance: CLORAZEPATE DIPOTASSIUM
     Indication: PRODUCT USED FOR UNKNOWN INDICATION
     Route: 065
  13. ROSWERA [Concomitant]
     Active Substance: ROSUVASTATIN
     Indication: HYPERCHOLESTEROLAEMIA
     Dosage: UNK UNK, UNKNOWN FREQ.(FOR MANY YEARS)
     Route: 048

REACTIONS (2)
  - Wrong technique in product usage process [Unknown]
  - Visual impairment [Not Recovered/Not Resolved]

NARRATIVE: CASE EVENT DATE: 20171205
